FAERS Safety Report 19685861 (Version 2)
Quarter: 2021Q3

REPORT INFORMATION
  Report Type: Other
  Country: JP (occurrence: JP)
  Receive Date: 20210811
  Receipt Date: 20210819
  Transmission Date: 20211014
  Serious: Yes (Hospitalization)
  Sender: FDA-Public Use
  Company Number: JP-ROCHE-2885814

PATIENT
  Age: 59 Year
  Sex: Female
  Weight: 60 kg

DRUGS (15)
  1. ACTEMRA [Suspect]
     Active Substance: TOCILIZUMAB
     Route: 041
     Dates: start: 20140610
  2. PREDNISOLONE. [Suspect]
     Active Substance: PREDNISOLONE
     Dosage: 30MILLIGRAM/DAY
     Route: 048
     Dates: start: 20140531, end: 2014
  3. PROGRAF [Suspect]
     Active Substance: TACROLIMUS
     Indication: PRODUCT USED FOR UNKNOWN INDICATION
     Route: 048
     Dates: end: 20140526
  4. MICARDIS [Concomitant]
     Active Substance: TELMISARTAN
     Route: 065
  5. URSO [Concomitant]
     Active Substance: URSODIOL
     Route: 065
  6. PREDNISOLONE. [Suspect]
     Active Substance: PREDNISOLONE
     Dosage: 15 MILLIGRAM/DAY
     Route: 048
     Dates: start: 20140610, end: 2014
  7. TAKEPRON [Concomitant]
     Active Substance: LANSOPRAZOLE
     Route: 065
  8. MEVALOTIN [Concomitant]
     Active Substance: PRAVASTATIN SODIUM
     Route: 065
  9. ACTEMRA [Suspect]
     Active Substance: TOCILIZUMAB
     Indication: STILL^S DISEASE
     Route: 041
     Dates: start: 20140423, end: 2014
  10. PREDNISOLONE. [Suspect]
     Active Substance: PREDNISOLONE
     Dosage: 20MILLIGRAM/DAY
     Route: 048
     Dates: start: 20140604, end: 2014
  11. RHEUMATREX [Suspect]
     Active Substance: METHOTREXATE SODIUM
     Indication: PRODUCT USED FOR UNKNOWN INDICATION
     Route: 048
     Dates: end: 20140526
  12. FOLIAMIN [Concomitant]
     Active Substance: FOLIC ACID
     Route: 065
  13. SEIBULE [Concomitant]
     Active Substance: MIGLITOL
     Route: 065
  14. PREDNISOLONE. [Suspect]
     Active Substance: PREDNISOLONE
     Dosage: 40MILLIGRAM/DAY
     Route: 048
     Dates: start: 20140526, end: 2014
  15. PREDNISOLONE. [Suspect]
     Active Substance: PREDNISOLONE
     Indication: PRODUCT USED FOR UNKNOWN INDICATION
     Dosage: TID.20MILLIGRAM/DAY
     Route: 048
     Dates: end: 2014

REACTIONS (2)
  - Off label use [Unknown]
  - Pneumocystis jirovecii pneumonia [Recovered/Resolved]

NARRATIVE: CASE EVENT DATE: 20140526
